FAERS Safety Report 14233766 (Version 1)
Quarter: 2017Q4

REPORT INFORMATION
  Report Type: Spontaneous
  Country: US (occurrence: US)
  Receive Date: 20171128
  Receipt Date: 20171128
  Transmission Date: 20180321
  Serious: Yes (Disabling, Other)
  Sender: FDA-Public Use
  Company Number: US-REGENERON PHARMACEUTICALS, INC.-2017-27467

PATIENT

DRUGS (2)
  1. EYLEA [Suspect]
     Active Substance: AFLIBERCEPT
     Dosage: Q4-6 WEEKS, LAST PRIOR TO EVENT, OD
     Route: 031
     Dates: start: 20171114, end: 20171114
  2. EYLEA [Suspect]
     Active Substance: AFLIBERCEPT
     Indication: NEOVASCULAR AGE-RELATED MACULAR DEGENERATION
     Dosage: UNK, Q4-6 WEEKS, OD
     Route: 031
     Dates: start: 201701

REACTIONS (5)
  - Blindness unilateral [Recovering/Resolving]
  - Vitritis [Unknown]
  - Non-infectious endophthalmitis [Unknown]
  - Eye pain [Unknown]
  - Anterior chamber cell [Unknown]

NARRATIVE: CASE EVENT DATE: 20171115
